FAERS Safety Report 16146487 (Version 1)
Quarter: 2019Q2

REPORT INFORMATION
  Report Type: Spontaneous
  Country: FR (occurrence: FR)
  Receive Date: 20190402
  Receipt Date: 20190402
  Transmission Date: 20190711
  Serious: Yes (Disabling)
  Sender: FDA-Public Use
  Company Number: FR-SUN PHARMACEUTICAL INDUSTRIES LTD-2019RR-203597

PATIENT
  Age: 69 Year
  Sex: Male
  Weight: 66 kg

DRUGS (4)
  1. DERMOVAL [Concomitant]
     Indication: PRODUCT USED FOR UNKNOWN INDICATION
     Dosage: ()
     Route: 065
  2. FENOFIBRATE. [Suspect]
     Active Substance: FENOFIBRATE
     Indication: HYPERTRIGLYCERIDAEMIA
     Dosage: 160 MILLIGRAM, DAILY
     Route: 048
     Dates: start: 201604
  3. TARGRETIN [Suspect]
     Active Substance: BEXAROTENE
     Indication: CUTANEOUS T-CELL LYMPHOMA
     Dosage: 7 DOSAGE FORM, DAILY
     Route: 048
     Dates: start: 201604
  4. LEVOTHYROX 50 MICROGRAMMES, COMPRIME SECABLE [Suspect]
     Active Substance: LEVOTHYROXINE SODIUM
     Indication: HYPOTHYROIDISM
     Dosage: 1 DOSAGE FORM, DAILY
     Route: 048
     Dates: start: 201605

REACTIONS (1)
  - Facial paresis [Recovered/Resolved with Sequelae]

NARRATIVE: CASE EVENT DATE: 201706
